FAERS Safety Report 4487013-9 (Version None)
Quarter: 2004Q3

REPORT INFORMATION
  Report Type: 
  Country: None (occurrence: None)
  Receive Date: 20040921
  Receipt Date: 20040408
  Transmission Date: 20050211
  Serious: Yes (Hospitalization)
  Sender: FDA-Public Use
  Company Number: 163-20785-04040210 (0)

PATIENT
  Age: 56 Year
  Sex: Male

DRUGS (15)
  1. THALOMID [Suspect]
     Indication: MULTIPLE MYELOMA
     Dosage: ORAL
     Route: 048
     Dates: start: 20010201
  2. CYCLOPHOSPHAMIDE [Suspect]
     Indication: MULTIPLE MYELOMA
     Dates: start: 20040515
  3. ADRIAMYCIN PFS [Suspect]
     Indication: MULTIPLE MYELOMA
     Dates: start: 20010815
  4. DEXAMETHASONE [Suspect]
     Indication: MULTIPLE MYELOMA
     Dates: start: 20010515
  5. GM-CSF (GRANULOCYTE MACROPHAGE COLONY STIM FACTOR) [Suspect]
     Indication: MULTIPLE MYELOMA
     Dates: start: 20010101
  6. ACYCLOVIR [Concomitant]
  7. SYNTHROID [Concomitant]
  8. TOPROL (METOPROLOL SUCCINATE) [Concomitant]
  9. DIFLUCAN [Concomitant]
  10. ZOSYN [Concomitant]
  11. MAGNESIUM OXIDE [Concomitant]
  12. ZANTAC [Concomitant]
  13. GRANULOCYTE COLONY STIMULATING FACTOR [Concomitant]
  14. PHOSPHORUS INFUSER [Concomitant]
  15. NEUTRO-PHOS [Concomitant]

REACTIONS (8)
  - ATRIAL FIBRILLATION [None]
  - DIARRHOEA [None]
  - HAEMOGLOBIN DECREASED [None]
  - HYPOTENSION [None]
  - NEUTROPENIA [None]
  - PLATELET COUNT DECREASED [None]
  - PYREXIA [None]
  - WHITE BLOOD CELL COUNT DECREASED [None]
